FAERS Safety Report 15647194 (Version 1)
Quarter: 2018Q4

REPORT INFORMATION
  Report Type: Spontaneous
  Country: FR (occurrence: FR)
  Receive Date: 20181122
  Receipt Date: 20181122
  Transmission Date: 20190205
  Serious: Yes (Hospitalization)
  Sender: FDA-Public Use
  Company Number: FR-AUROBINDO-AUR-APL-2018-056610

PATIENT
  Age: 3 Year
  Sex: Female
  Weight: 12.3 kg

DRUGS (8)
  1. CEFOTAXIME [Suspect]
     Active Substance: CEFOTAXIME SODIUM
     Indication: PNEUMONIA
     Dosage: 2400 MILLIGRAM, DAILY
     Route: 042
     Dates: start: 20180411, end: 20180502
  2. LOVENOX [Suspect]
     Active Substance: ENOXAPARIN SODIUM
     Indication: THROMBOSIS PROPHYLAXIS
     Dosage: 1000 INTERNATIONAL UNIT, DAILY
     Route: 058
     Dates: start: 20180411, end: 20180501
  3. VANCOMYCINE SANDOZ [Suspect]
     Active Substance: VANCOMYCIN
     Indication: PNEUMONIA
     Dosage: 500 MILLIGRAM, DAILY
     Route: 042
     Dates: start: 20180420, end: 20180430
  4. DOLIPRANE [Concomitant]
     Active Substance: ACETAMINOPHEN
     Indication: PRODUCT USED FOR UNKNOWN INDICATION
     Dosage: UNK
     Route: 065
  5. AUGMENTIN [Suspect]
     Active Substance: AMOXICILLIN\CLAVULANATE POTASSIUM
     Indication: NASOPHARYNGITIS
     Dosage: 1 UNK, DAILY
     Route: 048
     Dates: start: 20180409, end: 20180411
  6. AMIKACINE                          /00391002/ [Suspect]
     Active Substance: AMIKACIN
     Indication: PNEUMONIA
     Dosage: 184.5 MILLIGRAM, DAILY
     Route: 042
     Dates: start: 20180411, end: 20180412
  7. TEICOPLANINE MYLAN [Suspect]
     Active Substance: TEICOPLANIN
     Indication: PNEUMONIA
     Dosage: 70 MILLIGRAM, DAILY
     Route: 042
     Dates: start: 20180501, end: 20180502
  8. AMOXICILLIN. [Suspect]
     Active Substance: AMOXICILLIN
     Indication: PNEUMONIA
     Dosage: 1500 MILLIGRAM, DAILY
     Route: 048
     Dates: start: 20180502, end: 20180503

REACTIONS (4)
  - Lymphadenitis [Recovered/Resolved]
  - Rash generalised [Recovered/Resolved]
  - Rash maculo-papular [Recovered/Resolved]
  - Lymphadenopathy [Recovered/Resolved]

NARRATIVE: CASE EVENT DATE: 20180503
